FAERS Safety Report 24892667 (Version 1)
Quarter: 2025Q1

REPORT INFORMATION
  Report Type: Spontaneous
  Country: US (occurrence: US)
  Receive Date: 20250128
  Receipt Date: 20250128
  Transmission Date: 20250408
  Serious: No
  Sender: Kenvue
  Company Number: US-KENVUE-20250100915

PATIENT
  Sex: Female
  Weight: 49.9 kg

DRUGS (26)
  1. TYLENOL [Suspect]
     Active Substance: ACETAMINOPHEN
     Indication: Headache
     Route: 065
  2. ALEVE [Concomitant]
     Active Substance: NAPROXEN SODIUM
     Indication: Headache
     Route: 065
  3. TRELEGY ELLIPTA [Concomitant]
     Active Substance: FLUTICASONE FUROATE\UMECLIDINIUM BROMIDE\VILANTEROL TRIFENATATE
     Indication: Product used for unknown indication
     Route: 065
  4. TYVASO DPI [Concomitant]
     Active Substance: TREPROSTINIL
     Indication: Pulmonary arterial hypertension
  5. TYVASO DPI [Concomitant]
     Active Substance: TREPROSTINIL
     Dosage: 16 MICROGRAM, FOUR TIME A DAY
     Dates: start: 2024, end: 2024
  6. TYVASO DPI [Concomitant]
     Active Substance: TREPROSTINIL
     Dosage: 32 MICROGRAM, FOUR TIME A DAY
     Dates: start: 2024, end: 2024
  7. TYVASO DPI [Concomitant]
     Active Substance: TREPROSTINIL
     Dosage: 112 MICROGRAM, FOUR TIME A DAY
     Dates: start: 2024, end: 2024
  8. TYVASO DPI [Concomitant]
     Active Substance: TREPROSTINIL
     Dosage: 48 MICROGRAM, THRICE A DAY
     Dates: start: 2024, end: 2024
  9. TYVASO DPI [Concomitant]
     Active Substance: TREPROSTINIL
     Dosage: 64 MICROGRAM, FOUR TIME A DAY
     Dates: start: 2024, end: 2024
  10. TYVASO DPI [Concomitant]
     Active Substance: TREPROSTINIL
     Dosage: (64 ?G, BID + 48 ?G BID), FOUR TIME A DAY
     Dates: start: 2024, end: 2024
  11. TYVASO DPI [Concomitant]
     Active Substance: TREPROSTINIL
     Dates: start: 20240903
  12. TREPROSTINIL [Concomitant]
     Active Substance: TREPROSTINIL
     Indication: Pulmonary arterial hypertension
     Dosage: 32 MICROGRAM, FOUR TIME A DAY
     Dates: start: 202409, end: 2024
  13. ALBUTEROL SULFATE [Concomitant]
     Active Substance: ALBUTEROL SULFATE
     Indication: Asthma
  14. VITAMIN B12 [Concomitant]
     Active Substance: CYANOCOBALAMIN
     Indication: Product used for unknown indication
     Route: 065
  15. CITALOPRAM HYDROBROMIDE [Concomitant]
     Active Substance: CITALOPRAM HYDROBROMIDE
     Indication: Product used for unknown indication
     Route: 065
  16. MYCOPHENOLATE MOFETIL [Concomitant]
     Active Substance: MYCOPHENOLATE MOFETIL
     Indication: Product used for unknown indication
     Route: 065
  17. POTASSIUM CHLORIDE [Concomitant]
     Active Substance: POTASSIUM CHLORIDE
     Indication: Product used for unknown indication
     Route: 065
  18. ROSUVASTATIN CALCIUM [Concomitant]
     Active Substance: ROSUVASTATIN CALCIUM
     Indication: Product used for unknown indication
     Route: 065
  19. BREO ELLIPTA [Concomitant]
     Active Substance: FLUTICASONE FUROATE\VILANTEROL TRIFENATATE
     Indication: Product used for unknown indication
     Route: 065
  20. VITAMIN D2 [Concomitant]
     Active Substance: ERGOCALCIFEROL
     Indication: Product used for unknown indication
     Route: 065
  21. METOPROLOL SUCCINATE [Concomitant]
     Active Substance: METOPROLOL SUCCINATE
     Indication: Product used for unknown indication
     Route: 065
  22. LEVOTHYROXINE SODIUM [Concomitant]
     Active Substance: LEVOTHYROXINE SODIUM
     Indication: Product used for unknown indication
     Route: 065
  23. TIZANIDINE HYDROCHLORIDE [Concomitant]
     Active Substance: TIZANIDINE HYDROCHLORIDE
     Indication: Product used for unknown indication
     Route: 065
  24. ONDANSETRON HYDROCHLORIDE [Concomitant]
     Active Substance: ONDANSETRON HYDROCHLORIDE
     Indication: Product used for unknown indication
     Route: 065
  25. VALSARTAN [Concomitant]
     Active Substance: VALSARTAN
     Indication: Product used for unknown indication
     Route: 065
  26. UNSPECIFIED INGREDIENT [Concomitant]
     Active Substance: UNSPECIFIED INGREDIENT
     Indication: Product used for unknown indication
     Route: 065
     Dates: start: 20240926

REACTIONS (1)
  - Product use in unapproved indication [Unknown]
